FAERS Safety Report 19701668 (Version 3)
Quarter: 2021Q3

REPORT INFORMATION
  Report Type: Spontaneous
  Country: US (occurrence: US)
  Receive Date: 20210813
  Receipt Date: 20210924
  Transmission Date: 20211014
  Serious: Yes (Life-Threatening, Disabling, Other)
  Sender: FDA-Public Use
  Company Number: US-ORGANON-O2108USA000997

PATIENT
  Age: 36 Year
  Sex: Female

DRUGS (1)
  1. NEXPLANON [Suspect]
     Active Substance: ETONOGESTREL
     Indication: CONTRACEPTION
     Dosage: 1 IMPLANT, LEFT ARM
     Route: 059
     Dates: start: 20180305

REACTIONS (18)
  - Pain in extremity [Unknown]
  - Contusion [Unknown]
  - Back pain [Unknown]
  - Incorrect product administration duration [Unknown]
  - Chest pain [Unknown]
  - Device dislocation [Not Recovered/Not Resolved]
  - Gastrointestinal disorder [Unknown]
  - Chest discomfort [Not Recovered/Not Resolved]
  - Headache [Unknown]
  - Dyspnoea [Unknown]
  - Nephrolithiasis [Unknown]
  - Gallbladder disorder [Recovered/Resolved]
  - Breast pain [Unknown]
  - Heavy menstrual bleeding [Unknown]
  - Feeling abnormal [Unknown]
  - Complication of device removal [Not Recovered/Not Resolved]
  - Complication associated with device [Recovered/Resolved]
  - Weight increased [Unknown]

NARRATIVE: CASE EVENT DATE: 2018
